FAERS Safety Report 7493501-3 (Version None)
Quarter: 2011Q2

REPORT INFORMATION
  Report Type: 
  Country: None (occurrence: None)
  Receive Date: 20110520
  Receipt Date: 20110516
  Transmission Date: 20111010
  Serious: Yes (Other)
  Sender: FDA-Public Use
  Company Number: JP-PFIZER INC-2011099244

PATIENT
  Age: 37 Year
  Sex: Female

DRUGS (6)
  1. FAMOTIDINE [Suspect]
     Indication: SUBACUTE HEPATIC FAILURE
     Dosage: UNK
     Route: 048
     Dates: start: 20110507, end: 20110507
  2. VITAMIN K2 [Suspect]
     Indication: SUBACUTE HEPATIC FAILURE
     Dosage: UNK
     Route: 042
     Dates: start: 20110507, end: 20110507
  3. BETAMETHASONE [Concomitant]
     Dosage: UNK
     Route: 041
     Dates: start: 20110507, end: 20110509
  4. REMINARON [Suspect]
     Indication: SUBACUTE HEPATIC FAILURE
     Dosage: UNK
     Dates: start: 20110507, end: 20110507
  5. BOSMIN [Concomitant]
     Dosage: UNK
     Dates: start: 20110507
  6. SOLU-MEDROL [Suspect]
     Indication: SUBACUTE HEPATIC FAILURE
     Dosage: UNK
     Route: 042
     Dates: start: 20110507, end: 20110507

REACTIONS (1)
  - ASTHMA [None]
